FAERS Safety Report 7930218-2 (Version None)
Quarter: 2011Q4

REPORT INFORMATION
  Report Type: 
  Country: None (occurrence: None)
  Receive Date: 20111121
  Receipt Date: 20111110
  Transmission Date: 20120403
  Serious: Yes (Hospitalization, Other)
  Sender: FDA-Public Use
  Company Number: MX-SANOFI-AVENTIS-2011SA074485

PATIENT
  Age: 66 Year
  Sex: Male
  Weight: 66 kg

DRUGS (4)
  1. METFORMIN HCL [Concomitant]
     Indication: TYPE 2 DIABETES MELLITUS
     Route: 048
     Dates: start: 20070101
  2. LANTUS [Suspect]
     Indication: TYPE 2 DIABETES MELLITUS
     Dosage: DOSE REPORTED AS 16 IU IN THE MORNING AND 8 IU AT NIGHT
     Route: 058
     Dates: start: 20070101
  3. ASPIRIN [Concomitant]
     Route: 048
     Dates: start: 20100101
  4. METOPROLOL TARTRATE [Concomitant]
     Route: 048
     Dates: start: 20100101

REACTIONS (3)
  - HYPERGLYCAEMIA [None]
  - DRUG ADMINISTRATION ERROR [None]
  - MYOCARDIAL INFARCTION [None]
